FAERS Safety Report 9439177 (Version 2)
Quarter: 2013Q3

REPORT INFORMATION
  Report Type: Spontaneous
  Country: US (occurrence: US)
  Receive Date: 20130802
  Receipt Date: 20130806
  Transmission Date: 20140515
  Serious: Yes (Other)
  Sender: FDA-Public Use
  Company Number: US-JNJFOC-20130714202

PATIENT
  Age: 68 Year
  Sex: Male
  Weight: 91.63 kg

DRUGS (3)
  1. ROGAINE EXTRA STRENGTH FOR MEN [Suspect]
     Route: 061
  2. ROGAINE EXTRA STRENGTH FOR MEN [Suspect]
     Indication: ALOPECIA
     Dosage: 1/2 CAPFUL
     Route: 061
     Dates: end: 20130721
  3. CRESTOR [Concomitant]
     Indication: BLOOD CHOLESTEROL
     Dosage: 1-10MG, INTERVAL= 17 YEARS
     Route: 065

REACTIONS (6)
  - Burning sensation [Not Recovered/Not Resolved]
  - Gait disturbance [Not Recovered/Not Resolved]
  - Oedema peripheral [Not Recovered/Not Resolved]
  - Pain [Not Recovered/Not Resolved]
  - Erythema [Not Recovered/Not Resolved]
  - Incorrect dose administered [Unknown]
